FAERS Safety Report 19769279 (Version 2)
Quarter: 2021Q3

REPORT INFORMATION
  Report Type: Report from Study
  Country: US (occurrence: US)
  Receive Date: 20210831
  Receipt Date: 20210924
  Transmission Date: 20211014
  Serious: No
  Sender: FDA-Public Use
  Company Number: NVSC2021US196323

PATIENT
  Sex: Female

DRUGS (2)
  1. COSENTYX [Suspect]
     Active Substance: SECUKINUMAB
     Indication: PSORIATIC ARTHROPATHY
     Dosage: UNK
     Route: 065
  2. COSENTYX [Suspect]
     Active Substance: SECUKINUMAB
     Dosage: 150 MG, QMO
     Route: 058
     Dates: start: 202108

REACTIONS (4)
  - Joint swelling [Unknown]
  - Injection site inflammation [Recovering/Resolving]
  - Condition aggravated [Not Recovered/Not Resolved]
  - Fatigue [Not Recovered/Not Resolved]
